FAERS Safety Report 8090983-3 (Version None)
Quarter: 2012Q1

REPORT INFORMATION
  Report Type: 
  Country: None (occurrence: None)
  Receive Date: 20120128
  Receipt Date: 20110801
  Transmission Date: 20120608
  Serious: No
  Sender: FDA-Public Use
  Company Number: US-ABBOTT-11P-163-0842973-00

PATIENT
  Age: 26 Year
  Sex: Male

DRUGS (1)
  1. HUMIRA [Suspect]
     Indication: ANKYLOSING SPONDYLITIS
     Dosage: WEEKLY
     Dates: start: 20080101

REACTIONS (2)
  - CHEST PAIN [None]
  - HYPOAESTHESIA [None]
